FAERS Safety Report 19569430 (Version 1)
Quarter: 2021Q3

REPORT INFORMATION
  Report Type: Spontaneous
  Country: US (occurrence: US)
  Receive Date: 20210716
  Receipt Date: 20210716
  Transmission Date: 20211014
  Serious: Yes (Other)
  Sender: FDA-Public Use
  Company Number: US-PFIZER INC-2021846586

PATIENT
  Age: 56 Year
  Sex: Female
  Weight: 63.04 kg

DRUGS (3)
  1. CHOLEST OFF NATURE MADE [Suspect]
     Active Substance: DIETARY SUPPLEMENT
     Indication: NUTRITIONAL SUPPLEMENTATION
     Dosage: 1 CAPSULE ONCE A DAY WITH A LARGE MEAL (USUALLY SUPPER)
     Dates: start: 202103, end: 20210428
  2. NORVASC [Suspect]
     Active Substance: AMLODIPINE BESYLATE
     Dosage: 2.5 MG
  3. CHOLEST OFF NATURE MADE [Suspect]
     Active Substance: DIETARY SUPPLEMENT
     Indication: BLOOD CHOLESTEROL INCREASED

REACTIONS (3)
  - Rash macular [Not Recovered/Not Resolved]
  - Liver function test increased [Unknown]
  - Pain in extremity [Unknown]

NARRATIVE: CASE EVENT DATE: 202104
